FAERS Safety Report 15846824 (Version 1)
Quarter: 2019Q1

REPORT INFORMATION
  Report Type: Spontaneous
  Country: US (occurrence: US)
  Receive Date: 20190121
  Receipt Date: 20190121
  Transmission Date: 20190417
  Serious: Yes (Other)
  Sender: FDA-Public Use
  Company Number: US-ROCHE-2246672

PATIENT
  Age: 61 Year
  Sex: Male

DRUGS (20)
  1. FUROSEMIDE. [Concomitant]
     Active Substance: FUROSEMIDE
  2. OXYCODONE [Concomitant]
     Active Substance: OXYCODONE
  3. RIBAVIRIN. [Suspect]
     Active Substance: RIBAVIRIN
     Dosage: AT WEEK 8 OF SOF/VEL/ VOX THERAPY, RBV WAS ADDED
     Route: 065
     Dates: end: 201712
  4. NEBIVOLOL. [Concomitant]
     Active Substance: NEBIVOLOL
  5. BUPROPION. [Concomitant]
     Active Substance: BUPROPION
  6. METHYLPREDNISOLONE. [Suspect]
     Active Substance: METHYLPREDNISOLONE
     Indication: HEPATOCELLULAR CARCINOMA
     Route: 065
  7. MYCOPHENOLATE MOFETIL. [Suspect]
     Active Substance: MYCOPHENOLATE MOFETIL
     Indication: HEPATOCELLULAR CARCINOMA
     Route: 065
  8. RIBAVIRIN. [Suspect]
     Active Substance: RIBAVIRIN
     Indication: HEPATITIS C
     Route: 065
     Dates: start: 201402
  9. PEG-INTERFERON ALFA 2A [Suspect]
     Active Substance: PEGINTERFERON ALFA-2A
     Indication: HEPATITIS C
     Route: 065
  10. TACROLIMUS. [Suspect]
     Active Substance: TACROLIMUS
     Indication: HEPATOCELLULAR CARCINOMA
     Route: 065
  11. SOFOSBUVIR/VELPATASVIR/VOXILAPREVIR [Suspect]
     Active Substance: SOFOSBUVIR\VELPATASVIR\VOXILAPREVIR
     Indication: HEPATITIS C
     Route: 065
     Dates: start: 201708, end: 201712
  12. SOFOSBUVIR [Suspect]
     Active Substance: SOFOSBUVIR
     Indication: HEPATITIS C
     Route: 065
     Dates: start: 201402
  13. ZOLPIDEM [Concomitant]
     Active Substance: ZOLPIDEM\ZOLPIDEM TARTRATE
  14. OMEPRAZOLE. [Concomitant]
     Active Substance: OMEPRAZOLE
  15. VALGANCICLOVIR. [Concomitant]
     Active Substance: VALGANCICLOVIR
     Route: 065
  16. RIBAVIRIN. [Suspect]
     Active Substance: RIBAVIRIN
     Route: 065
  17. SOFOSBUVIR [Suspect]
     Active Substance: SOFOSBUVIR
     Route: 065
  18. PREDNISONE. [Suspect]
     Active Substance: PREDNISONE
     Indication: HEPATOCELLULAR CARCINOMA
     Route: 065
  19. INSULIN [Concomitant]
     Active Substance: INSULIN NOS
  20. IRBESARTAN. [Concomitant]
     Active Substance: IRBESARTAN

REACTIONS (4)
  - Insomnia [Unknown]
  - Anaemia [Unknown]
  - Fatigue [Unknown]
  - Hepatitis C [Unknown]
